FAERS Safety Report 15392240 (Version 1)
Quarter: 2018Q3

REPORT INFORMATION
  Report Type: Spontaneous
  Country: US (occurrence: US)
  Receive Date: 20180917
  Receipt Date: 20180917
  Transmission Date: 20181010
  Serious: No
  Sender: FDA-Public Use
  Company Number: US-ASTRAZENECA-2018SF07344

PATIENT
  Age: 30627 Day
  Sex: Female
  Weight: 59 kg

DRUGS (2)
  1. EYE DROP [Concomitant]
     Active Substance: UNSPECIFIED INGREDIENT
  2. SYMBICORT [Suspect]
     Active Substance: BUDESONIDE\FORMOTEROL FUMARATE DIHYDRATE
     Indication: CHRONIC OBSTRUCTIVE PULMONARY DISEASE
     Dosage: 160/ 4.5 MCG TWO INHALATIONS TWICE DAILY
     Route: 055

REACTIONS (5)
  - Corneal graft rejection [Unknown]
  - Visual impairment [Unknown]
  - Drug dose omission [Unknown]
  - Glaucoma [Unknown]
  - Infection [Unknown]

NARRATIVE: CASE EVENT DATE: 20180820
